FAERS Safety Report 9752199 (Version 1)
Quarter: 2013Q4

REPORT INFORMATION
  Report Type: Spontaneous
  Country: FR (occurrence: None)
  Receive Date: 20131211
  Receipt Date: 20131211
  Transmission Date: 20140711
  Serious: Yes (Other)
  Sender: FDA-Public Use
  Company Number: FR-20130443

PATIENT
  Age: 58 Year
  Sex: Female

DRUGS (1)
  1. DOTAREM (GADOTERIC ACID) [Suspect]
     Indication: NUCLEAR MAGNETIC RESONANCE IMAGING BRAIN
     Dosage: UNK (1 IN 1 D)
     Dates: start: 201305, end: 201305

REACTIONS (6)
  - Headache [None]
  - Facial pain [None]
  - Eye irritation [None]
  - Mydriasis [None]
  - Rhinorrhoea [None]
  - Paraesthesia [None]
